FAERS Safety Report 9911430 (Version 1)
Quarter: 2014Q1

REPORT INFORMATION
  Report Type: Spontaneous
  Country: US (occurrence: MX)
  Receive Date: 20140219
  Receipt Date: 20140219
  Transmission Date: 20141002
  Serious: Yes (Death)
  Sender: FDA-Public Use
  Company Number: MX-FRI-1000054352

PATIENT
  Sex: Male

DRUGS (1)
  1. ROFLUMILAST [Suspect]
     Indication: EMPHYSEMA
     Dosage: 500 MCG
     Route: 048

REACTIONS (2)
  - Pulmonary embolism [Fatal]
  - Off label use [Fatal]
